FAERS Safety Report 21622643 (Version 1)
Quarter: 2022Q4

REPORT INFORMATION
  Report Type: Spontaneous
  Country: US (occurrence: None)
  Receive Date: 20221118
  Receipt Date: 20221118
  Transmission Date: 20230113
  Serious: Yes (Hospitalization, Other)
  Sender: FDA-Public Use
  Company Number: None

PATIENT
  Age: 11 Year
  Sex: Male
  Weight: 51 kg

DRUGS (1)
  1. REMICADE [Suspect]
     Active Substance: INFLIXIMAB
     Indication: Crohn^s disease
     Dosage: OTHER FREQUENCY : Q8W;?
     Route: 042

REACTIONS (14)
  - Dyspnoea [None]
  - Feeling hot [None]
  - Infusion related reaction [None]
  - Flushing [None]
  - Anxiety [None]
  - Body temperature increased [None]
  - Respiratory rate increased [None]
  - Feeling cold [None]
  - Chills [None]
  - Pallor [None]
  - Nausea [None]
  - Discomfort [None]
  - Crying [None]
  - Emotional distress [None]

NARRATIVE: CASE EVENT DATE: 20221118
